FAERS Safety Report 9409381 (Version 2)
Quarter: 2013Q3

REPORT INFORMATION
  Report Type: Spontaneous
  Country: US (occurrence: US)
  Receive Date: 20130719
  Receipt Date: 20130808
  Transmission Date: 20140515
  Serious: Yes (Hospitalization, Other)
  Sender: FDA-Public Use
  Company Number: US-JNJFOC-20130705134

PATIENT
  Sex: Female
  Weight: 72.58 kg

DRUGS (1)
  1. RISPERDAL [Suspect]
     Indication: SCHIZOAFFECTIVE DISORDER BIPOLAR TYPE
     Dosage: 6-8 MG DAILY
     Route: 048
     Dates: end: 200106

REACTIONS (7)
  - Stress [Unknown]
  - Weight increased [Recovered/Resolved]
  - Abnormal loss of weight [Recovered/Resolved]
  - Hormone level abnormal [Unknown]
  - Drug prescribing error [Recovered/Resolved]
  - Musculoskeletal pain [Unknown]
  - Overdose [Unknown]
